FAERS Safety Report 12692089 (Version 1)
Quarter: 2016Q3

REPORT INFORMATION
  Report Type: Spontaneous
  Country: US (occurrence: US)
  Receive Date: 20160827
  Receipt Date: 20160827
  Transmission Date: 20161109
  Serious: No
  Sender: FDA-Public Use
  Company Number: US-ASTRAZENECA-2016SE59683

PATIENT
  Sex: Female
  Weight: 113.4 kg

DRUGS (9)
  1. BYDUREON [Suspect]
     Active Substance: EXENATIDE
     Indication: TYPE 2 DIABETES MELLITUS
     Route: 058
     Dates: start: 2014
  2. DICLOFENAC [Concomitant]
     Active Substance: DICLOFENAC
     Indication: ARTHRALGIA
  3. PRILOSEC [Suspect]
     Active Substance: OMEPRAZOLE MAGNESIUM
     Route: 048
  4. METFORMIN [Concomitant]
     Active Substance: METFORMIN HYDROCHLORIDE
     Indication: DIABETES MELLITUS
     Dosage: 850.0MG UNKNOWN
     Route: 048
     Dates: start: 2003
  5. MOTRIN [Concomitant]
     Active Substance: IBUPROFEN
     Dosage: 800
  6. BYETTA [Suspect]
     Active Substance: EXENATIDE
     Indication: DIABETES MELLITUS
     Route: 058
     Dates: start: 2010, end: 2014
  7. ESOMEPRAZOLE PRESCRIPTION [Suspect]
     Active Substance: ESOMEPRAZOLE
     Indication: GASTROOESOPHAGEAL REFLUX DISEASE
     Dosage: 20.0MG UNKNOWN
     Route: 048
  8. BENAZEPRIL HTZ [Concomitant]
     Indication: RENAL DISORDER
     Dosage: 10 MG DAILY, 10 MG/12.5 MG
     Route: 048
     Dates: start: 2008
  9. ACTOS [Concomitant]
     Active Substance: PIOGLITAZONE HYDROCHLORIDE
     Indication: DIABETES MELLITUS
     Route: 048
     Dates: start: 2005

REACTIONS (4)
  - Off label use [Unknown]
  - Injection site extravasation [Unknown]
  - Cardiac murmur [Unknown]
  - Injection site haemorrhage [Unknown]
